FAERS Safety Report 7539328-5 (Version None)
Quarter: 2011Q2

REPORT INFORMATION
  Report Type: 
  Country: None (occurrence: None)
  Receive Date: 20110610
  Receipt Date: 20110527
  Transmission Date: 20111010
  Serious: Yes (Other)
  Sender: FDA-Public Use
  Company Number: GB-JNJFOC-20090908374

PATIENT
  Age: 51 Year
  Sex: Female
  Weight: 67 kg

DRUGS (6)
  1. METHOTREXATE [Concomitant]
     Dates: end: 20080930
  2. REMICADE [Suspect]
     Indication: RHEUMATOID ARTHRITIS
     Route: 042
     Dates: start: 20040621
  3. OTHER BIOLOGICS [Concomitant]
     Indication: RHEUMATOID ARTHRITIS
     Dates: start: 20040915, end: 20080930
  4. REMICADE [Suspect]
     Route: 042
     Dates: start: 20020815
  5. CO DYDRAMOL [Concomitant]
  6. FOLIC ACID [Concomitant]

REACTIONS (4)
  - HODGKIN'S DISEASE STAGE II [None]
  - WOUND DEHISCENCE [None]
  - COLON CANCER [None]
  - LYMPHADENITIS [None]
